FAERS Safety Report 24625929 (Version 2)
Quarter: 2024Q4

REPORT INFORMATION
  Report Type: Spontaneous
  Country: US (occurrence: US)
  Receive Date: 20241115
  Receipt Date: 20241118
  Transmission Date: 20250115
  Serious: Yes (Other)
  Sender: PFIZER
  Company Number: US-PFIZER INC-202400301356

PATIENT
  Age: 66 Year
  Sex: Male

DRUGS (1)
  1. XELJANZ XR [Suspect]
     Active Substance: TOFACITINIB CITRATE
     Indication: Rheumatoid arthritis
     Dosage: 11 MG PO (PER ORAL) DAILY 30 DAYS
     Route: 048

REACTIONS (4)
  - Squamous cell carcinoma of skin [Recovering/Resolving]
  - Hepatic enzyme increased [Not Recovered/Not Resolved]
  - Inflammation [Recovering/Resolving]
  - Osteoarthritis [Unknown]
